FAERS Safety Report 4475149-8 (Version None)
Quarter: 2004Q3

REPORT INFORMATION
  Report Type: 
  Country: None (occurrence: None)
  Receive Date: 20040923
  Receipt Date: 20040623
  Transmission Date: 20050211
  Serious: No
  Sender: FDA-Public Use
  Company Number: USA040670963

PATIENT
  Age: 80 Year
  Sex: Female
  Weight: 95 kg

DRUGS (4)
  1. FORTEO [Suspect]
     Indication: OSTEOPOROSIS
     Dates: start: 20040615
  2. COUMADIN [Concomitant]
  3. FUROSEMIDE [Concomitant]
  4. ASPIRIN [Concomitant]

REACTIONS (2)
  - INJECTION SITE STINGING [None]
  - SOMNOLENCE [None]
